FAERS Safety Report 11579710 (Version 3)
Quarter: 2015Q4

REPORT INFORMATION
  Report Type: Spontaneous
  Country: JP (occurrence: JP)
  Receive Date: 20150930
  Receipt Date: 20151104
  Transmission Date: 20160304
  Serious: Yes (Other)
  Sender: FDA-Public Use
  Company Number: JP-PFIZER INC-2015324311

PATIENT
  Age: 44 Year
  Sex: Female

DRUGS (5)
  1. LYRICA [Suspect]
     Active Substance: PREGABALIN
     Dosage: MORNING 25 MG, EVENING 50 MG
     Route: 048
     Dates: start: 20150608, end: 20150711
  2. LYRICA [Suspect]
     Active Substance: PREGABALIN
     Indication: HYPOAESTHESIA
     Dosage: MORNING 25 MG, EVENING 50 MG
     Route: 048
     Dates: start: 20150508, end: 20150521
  3. LYRICA [Suspect]
     Active Substance: PREGABALIN
     Indication: NEURALGIA
     Dosage: 25 MG, 2X/DAY
     Route: 048
     Dates: start: 20150427, end: 20150507
  4. LYRICA [Suspect]
     Active Substance: PREGABALIN
     Dosage: MORNING 25 MG, EVENING 75 MG
     Route: 048
     Dates: start: 20150522, end: 20150607
  5. NEUROTROPIN [Suspect]
     Active Substance: NEUROTROPIN
     Dosage: 2 DF, DAILY
     Route: 048
     Dates: start: 20150622, end: 20150709

REACTIONS (1)
  - Palpitations [Recovered/Resolved]

NARRATIVE: CASE EVENT DATE: 20150608
